FAERS Safety Report 13490431 (Version 2)
Quarter: 2017Q2

REPORT INFORMATION
  Report Type: Spontaneous
  Country: US (occurrence: US)
  Receive Date: 20170427
  Receipt Date: 20170516
  Transmission Date: 20170830
  Serious: No
  Sender: FDA-Public Use
  Company Number: US-AMGEN-USASP2017060245

PATIENT
  Age: 59 Year
  Sex: Female

DRUGS (3)
  1. ENBREL [Suspect]
     Active Substance: ETANERCEPT
     Dosage: 50 MG, 2 TIMES/WK
     Route: 058
  2. ENBREL [Suspect]
     Active Substance: ETANERCEPT
     Dosage: UNK UNK, 3 TIMES/WK
     Route: 065
  3. ENBREL [Suspect]
     Active Substance: ETANERCEPT
     Indication: PSORIATIC ARTHROPATHY
     Dosage: 50 MG, 2 TIMES/WK
     Route: 058

REACTIONS (11)
  - Intentional product misuse [Unknown]
  - Finger deformity [Unknown]
  - Wrong technique in product usage process [Unknown]
  - Underdose [Unknown]
  - Peripheral swelling [Not Recovered/Not Resolved]
  - Mobility decreased [Unknown]
  - Erythema [Unknown]
  - Off label use [Unknown]
  - Unevaluable event [Unknown]
  - Injection site pain [Unknown]
  - Pain in extremity [Unknown]
